FAERS Safety Report 19060305 (Version 4)
Quarter: 2022Q1

REPORT INFORMATION
  Report Type: Spontaneous
  Country: FR (occurrence: FR)
  Receive Date: 20210326
  Receipt Date: 20220201
  Transmission Date: 20220423
  Serious: Yes (Other)
  Sender: FDA-Public Use
  Company Number: FR-AFSSAPS-MP20201709

PATIENT
  Age: 62 Year
  Sex: Female

DRUGS (20)
  1. OCTREOTIDE [Suspect]
     Active Substance: OCTREOTIDE
     Indication: Fistula
     Dosage: 600 MICROGRAM, DAILY
     Route: 041
     Dates: start: 20200924, end: 20201025
  2. PANTOPRAZOLE [Suspect]
     Active Substance: PANTOPRAZOLE
     Indication: Product used for unknown indication
     Dosage: UNK
     Route: 048
     Dates: start: 20200924
  3. PANTOPRAZOLE [Suspect]
     Active Substance: PANTOPRAZOLE
     Dosage: 40 MILLIGRAM, DAILY
     Route: 048
     Dates: start: 20200924, end: 20201025
  4. LINEZOLID [Suspect]
     Active Substance: LINEZOLID
     Indication: Sepsis
     Dosage: UNK
     Route: 048
     Dates: start: 20201022, end: 20201027
  5. LINEZOLID [Suspect]
     Active Substance: LINEZOLID
     Dosage: 1200 MILLIGRAM, DAILY
     Route: 041
     Dates: start: 20201022, end: 20201027
  6. DOMPERIDONE [Suspect]
     Active Substance: DOMPERIDONE
     Indication: Nausea
     Dosage: UNK
     Route: 048
     Dates: start: 20201022
  7. ONDANSETRON [Suspect]
     Active Substance: ONDANSETRON
     Indication: Nausea
     Dosage: 12 MILLIGRAM, DAILY
     Route: 041
     Dates: start: 20201022, end: 20201103
  8. ONDANSETRON [Suspect]
     Active Substance: ONDANSETRON
     Dosage: 48 MILLIGRAM
     Route: 048
     Dates: start: 20200924
  9. FLUCONAZOLE [Suspect]
     Active Substance: FLUCONAZOLE
     Indication: Sepsis
     Dosage: 400 MILLIGRAM, DAILY
     Route: 041
     Dates: start: 20201022, end: 20201028
  10. FLUCONAZOLE [Suspect]
     Active Substance: FLUCONAZOLE
     Dosage: 400 MILLIGRAM, DAILY
     Route: 041
     Dates: start: 20201022, end: 20201028
  11. PIPERACILLIN SODIUM\TAZOBACTAM SODIUM [Suspect]
     Active Substance: PIPERACILLIN SODIUM\TAZOBACTAM SODIUM
     Indication: Product used for unknown indication
     Dosage: UNK
     Route: 048
     Dates: start: 20200926, end: 20201006
  12. TAZOBACTAM [Suspect]
     Active Substance: TAZOBACTAM
     Indication: Sepsis
     Dosage: 4G/500MG 2/JRS
     Route: 041
     Dates: start: 20200926, end: 20201022
  13. PIPERACILLIN [Suspect]
     Active Substance: PIPERACILLIN
     Indication: Sepsis
     Dosage: 4G/500MG 2/JRS
     Route: 041
     Dates: start: 20200926, end: 20201022
  14. MYCAMINE [Suspect]
     Active Substance: MICAFUNGIN SODIUM
     Indication: Candida sepsis
     Dosage: 100 MILLIGRAM, DAILY
     Route: 041
     Dates: start: 20201006, end: 20201022
  15. MOTILIUM [Suspect]
     Active Substance: DOMPERIDONE
     Indication: Nausea
     Dosage: IF NECESSARY, UNK
     Route: 048
     Dates: start: 20201022
  16. MOTILIUM [Suspect]
     Active Substance: DOMPERIDONE
     Dosage: UNK
     Route: 048
     Dates: start: 20201022
  17. MEROPENEM [Suspect]
     Active Substance: MEROPENEM
     Indication: Sepsis
     Dosage: UNK ()
     Route: 041
     Dates: start: 20201006, end: 20201020
  18. VANCOMYCIN [Suspect]
     Active Substance: VANCOMYCIN
     Indication: Infection
     Dosage: 2 GRAM, DAILY
     Route: 041
     Dates: start: 20200926, end: 20201006
  19. OCTREOTIDE [Suspect]
     Active Substance: OCTREOTIDE
     Indication: Fistula
     Dosage: UNK
     Route: 048
     Dates: start: 20200924
  20. OCTREOTIDE [Suspect]
     Active Substance: OCTREOTIDE
     Dosage: 600 MICROGRAM, DAILY
     Route: 042
     Dates: start: 20200924, end: 20201025

REACTIONS (4)
  - Rash morbilliform [Not Recovered/Not Resolved]
  - Dermatitis exfoliative generalised [Not Recovered/Not Resolved]
  - Off label use [Unknown]
  - Product use issue [Unknown]

NARRATIVE: CASE EVENT DATE: 20200926
